FAERS Safety Report 7928159-X (Version None)
Quarter: 2011Q4

REPORT INFORMATION
  Report Type: 
  Country: None (occurrence: None)
  Receive Date: 20111118
  Receipt Date: 20111108
  Transmission Date: 20120403
  Serious: Yes (Hospitalization, Other)
  Sender: FDA-Public Use
  Company Number: JP-ELI_LILLY_AND_COMPANY-JP201110001096

PATIENT
  Age: 73 Year
  Sex: Male
  Weight: 44 kg

DRUGS (12)
  1. LOXOPROFEN [Concomitant]
     Indication: PAIN
     Dosage: 1 DF, TID
     Route: 048
  2. RABEPRAZOLE SODIUM [Concomitant]
     Indication: PROPHYLAXIS
     Dosage: 1 DF, QD
     Route: 048
  3. PROMAC [Concomitant]
     Dosage: 1 DF, BID
     Route: 048
  4. SPIRIVA [Concomitant]
     Indication: CHRONIC OBSTRUCTIVE PULMONARY DISEASE
     Dosage: UNK
     Route: 055
  5. FENTANYL CITRATE [Concomitant]
     Indication: PAIN
     Route: 062
  6. BETAMETHASONE [Concomitant]
     Dosage: 2 DF, QD
     Route: 048
  7. GEMZAR [Suspect]
     Indication: PANCREATIC CARCINOMA STAGE IV
     Dosage: 1400 MG, OTHER
     Route: 042
     Dates: start: 20110418, end: 20110912
  8. TS 1 [Concomitant]
     Indication: PANCREATIC CARCINOMA STAGE IV
     Dosage: 100 MG, OTHER
     Route: 042
     Dates: start: 20110628
  9. FUROSEMIDE [Concomitant]
     Indication: OEDEMA
     Dosage: 20 MG, QD
     Route: 048
  10. MORPHINE [Concomitant]
     Indication: PAIN
     Route: 048
  11. AMARYL [Concomitant]
     Indication: DIABETES MELLITUS
     Dosage: 2 DF, BID
     Route: 048
  12. RESTREAM [Concomitant]
     Indication: BENIGN PROSTATIC HYPERPLASIA
     Dosage: 1 DF, QD
     Route: 048

REACTIONS (4)
  - NEOPLASM PROGRESSION [None]
  - PLEURAL EFFUSION [None]
  - INTERSTITIAL LUNG DISEASE [None]
  - ASCITES [None]
